FAERS Safety Report 4719230-4 (Version None)
Quarter: 2005Q3

REPORT INFORMATION
  Report Type: 
  Country: None (occurrence: None)
  Receive Date: 20050718
  Receipt Date: 20050718
  Transmission Date: 20060218
  Serious: Yes (Disabling)
  Sender: FDA-Public Use
  Company Number: None

PATIENT
  Age: 54 Year
  Sex: Female
  Weight: 52.6173 kg

DRUGS (2)
  1. LEVAQUIN [Suspect]
     Indication: DIVERTICULITIS
     Dosage: 1 BAG 1 A DAY INTRAVENOUS
     Route: 042
     Dates: start: 20050605, end: 20050609
  2. LEVAQUIN [Suspect]
     Indication: DIVERTICULITIS
     Dosage: 500 MG 1 A DAY ORAL
     Route: 048
     Dates: start: 20050610, end: 20050629

REACTIONS (16)
  - ASTHENIA [None]
  - BACK PAIN [None]
  - CRYING [None]
  - DECREASED APPETITE [None]
  - DEPRESSION [None]
  - DRUG INEFFECTIVE [None]
  - DRY EYE [None]
  - EYE IRRITATION [None]
  - INSOMNIA [None]
  - JOINT RANGE OF MOTION DECREASED [None]
  - LETHARGY [None]
  - NECK PAIN [None]
  - PYREXIA [None]
  - SHOULDER PAIN [None]
  - VISUAL ACUITY REDUCED [None]
  - WEIGHT DECREASED [None]
